FAERS Safety Report 6641343-0 (Version None)
Quarter: 2010Q1

REPORT INFORMATION
  Report Type: 
  Country: None (occurrence: None)
  Receive Date: 20100318
  Receipt Date: 20100308
  Transmission Date: 20100710
  Serious: Yes (Death, Other)
  Sender: FDA-Public Use
  Company Number: US-TYCO HEALTHCARE/MALLINCKRODT-T201000613

PATIENT
  Sex: Male

DRUGS (7)
  1. TRAMADOL HCL [Suspect]
     Indication: PAIN
     Dosage: 50 MG, TID
     Route: 048
     Dates: start: 20070101
  2. OXYCONTIN [Suspect]
     Indication: PAIN
     Dosage: UNK UNK, TID
  3. FENTANYL [Suspect]
     Indication: PAIN
     Dosage: 75, Q72 HOURS
     Route: 062
  4. NEURONTIN [Concomitant]
     Dosage: 1200 MG, TID
  5. LIPITOR [Concomitant]
     Dosage: UNK
  6. BLOOD PRESSURE MEDICATION [Concomitant]
     Dosage: UNK
  7. FLOMAX [Concomitant]
     Dosage: UNK

REACTIONS (8)
  - CARDIAC DISORDER [None]
  - DEATH [None]
  - FLUID RETENTION [None]
  - MULTI-ORGAN FAILURE [None]
  - OVERDOSE [None]
  - RESPIRATORY ARREST [None]
  - SOMNOLENCE [None]
  - VOMITING [None]
